FAERS Safety Report 11065878 (Version 2)
Quarter: 2015Q2

REPORT INFORMATION
  Report Type: Spontaneous
  Country: US (occurrence: US)
  Receive Date: 20150425
  Receipt Date: 20150525
  Transmission Date: 20150821
  Serious: Yes (Other)
  Sender: FDA-Public Use
  Company Number: US-JNJFOC-20141209476

PATIENT
  Sex: Female
  Weight: 102.06 kg

DRUGS (2)
  1. LEVAQUIN [Suspect]
     Active Substance: LEVOFLOXACIN
     Indication: HYPERSENSITIVITY
     Dosage: FOR 7 DAYS
     Route: 048
     Dates: start: 2013, end: 2013
  2. UNSPECIFIED GENERIC DRUG [Suspect]
     Active Substance: UNSPECIFIED INGREDIENT
     Indication: PRODUCT USED FOR UNKNOWN INDICATION
     Route: 048
     Dates: start: 2013

REACTIONS (4)
  - Product use issue [Unknown]
  - Hypokinesia [Recovered/Resolved]
  - Hypersensitivity [Recovered/Resolved]
  - Pain [Recovered/Resolved]

NARRATIVE: CASE EVENT DATE: 2013
